FAERS Safety Report 5246822-9 (Version None)
Quarter: 2007Q1

REPORT INFORMATION
  Report Type: 
  Country: None (occurrence: None)
  Receive Date: 20070226
  Receipt Date: 20070217
  Transmission Date: 20070707
  Serious: Yes (Other)
  Sender: FDA-Public Use
  Company Number: US-PFIZER INC-2007013889

PATIENT
  Age: 74 Year
  Sex: Male

DRUGS (8)
  1. CHANTIX [Suspect]
     Indication: EX-SMOKER
  2. WARFARIN SODIUM [Suspect]
  3. ZOCOR [Concomitant]
     Dosage: DAILY DOSE:20MG
  4. ACTONEL [Concomitant]
  5. PROTONIX [Concomitant]
  6. ASCORBIC ACID [Concomitant]
  7. VITAMIN CAP [Concomitant]
  8. OSCAL [Concomitant]

REACTIONS (2)
  - INTERNATIONAL NORMALISED RATIO ABNORMAL [None]
  - INTERNATIONAL NORMALISED RATIO INCREASED [None]
